FAERS Safety Report 8084447-0 (Version None)
Quarter: 2012Q1

REPORT INFORMATION
  Report Type: 
  Country: None (occurrence: None)
  Receive Date: 20120128
  Receipt Date: 20110322
  Transmission Date: 20120608
  Serious: No
  Sender: FDA-Public Use
  Company Number: US-ABBOTT-11P-163-0713969-00

PATIENT
  Sex: Female
  Weight: 95.34 kg

DRUGS (4)
  1. HUMIRA [Suspect]
     Indication: CROHN'S DISEASE
     Route: 058
     Dates: start: 20100801, end: 20101101
  2. HUMIRA [Suspect]
     Indication: SPONDYLOARTHROPATHY
     Dosage: PENS
     Route: 058
     Dates: start: 20110101
  3. METHOTREXATE [Suspect]
     Indication: CROHN'S DISEASE
     Dates: end: 20101101
  4. METHOTREXATE [Suspect]
     Indication: SPONDYLOARTHROPATHY
     Dates: start: 20110101

REACTIONS (3)
  - BLISTER [None]
  - DRY SKIN [None]
  - SECRETION DISCHARGE [None]
